FAERS Safety Report 10776565 (Version 9)
Quarter: 2016Q1

REPORT INFORMATION
  Report Type: Report from Study
  Country: US (occurrence: US)
  Receive Date: 20150209
  Receipt Date: 20160205
  Transmission Date: 20160525
  Serious: Yes (Hospitalization, Other)
  Sender: FDA-Public Use
  Company Number: US-SA-2015SA010233

PATIENT
  Age: 56 Year
  Sex: Female

DRUGS (7)
  1. AUBAGIO [Suspect]
     Active Substance: TERIFLUNOMIDE
     Indication: MULTIPLE SCLEROSIS
     Route: 048
     Dates: start: 20141201, end: 20150415
  2. DILAUDID [Concomitant]
     Active Substance: HYDROMORPHONE HYDROCHLORIDE
  3. LEXAPRO [Concomitant]
     Active Substance: ESCITALOPRAM OXALATE
  4. MORPHINE [Concomitant]
     Active Substance: MORPHINE
  5. CYMBALTA [Concomitant]
     Active Substance: DULOXETINE HYDROCHLORIDE
  6. AUBAGIO [Suspect]
     Active Substance: TERIFLUNOMIDE
     Indication: MULTIPLE SCLEROSIS
     Route: 048
     Dates: start: 20150728
  7. PREDNISONE. [Concomitant]
     Active Substance: PREDNISONE
     Indication: SYSTEMIC LUPUS ERYTHEMATOSUS

REACTIONS (16)
  - Cerebrospinal fluid leakage [Recovering/Resolving]
  - Malaise [Unknown]
  - Migraine [Unknown]
  - Stress [Unknown]
  - Central nervous system lesion [Unknown]
  - Neoplasm malignant [Unknown]
  - Fatigue [Recovering/Resolving]
  - Muscular weakness [Unknown]
  - Surgery [Unknown]
  - Multiple sclerosis relapse [Not Recovered/Not Resolved]
  - Tearfulness [Unknown]
  - Gait disturbance [Unknown]
  - Nausea [Unknown]
  - Back pain [Unknown]
  - Headache [Recovering/Resolving]
  - Muscle spasms [Unknown]

NARRATIVE: CASE EVENT DATE: 2015
